FAERS Safety Report 5707582-8 (Version None)
Quarter: 2008Q2

REPORT INFORMATION
  Report Type: 
  Country: None (occurrence: None)
  Receive Date: 20080416
  Receipt Date: 20080404
  Transmission Date: 20081010
  Serious: Yes (Hospitalization, Other)
  Sender: FDA-Public Use
  Company Number: JP-PFIZER INC-2008026942

PATIENT
  Sex: Male
  Weight: 56 kg

DRUGS (14)
  1. EPLERENONE [Suspect]
     Indication: ESSENTIAL HYPERTENSION
     Route: 048
     Dates: start: 20080318, end: 20080324
  2. IBUPROFEN [Suspect]
     Indication: PHARYNGITIS
     Route: 048
     Dates: start: 20080317, end: 20080321
  3. IBUPROFEN [Suspect]
     Indication: LARYNGITIS
  4. OZEX [Suspect]
     Indication: PHARYNGITIS
     Route: 048
     Dates: start: 20080317, end: 20080321
  5. OZEX [Suspect]
     Indication: LARYNGITIS
  6. MARZULENE S [Suspect]
     Indication: NASOPHARYNGITIS
     Dosage: TEXT:3 DF-FREQ:TID
     Route: 048
     Dates: start: 20080317, end: 20080321
  7. MARZULENE S [Suspect]
     Indication: GASTRITIS
  8. OLMESARTAN MEDOXOMIL [Concomitant]
     Indication: HYPERTENSION
     Dosage: DAILY DOSE:20MG-FREQ:QD
     Route: 048
  9. CONIEL [Concomitant]
     Indication: HYPERTENSION
     Route: 048
  10. MITIGLINIDE [Concomitant]
     Route: 048
  11. BASEN [Concomitant]
     Route: 048
  12. MELBIN [Concomitant]
     Route: 048
  13. FLUITRAN [Concomitant]
     Indication: HYPERTENSION
     Dosage: DAILY DOSE:2MG
     Route: 048
     Dates: start: 20071227, end: 20080316
  14. ISODINE [Concomitant]

REACTIONS (1)
  - RHABDOMYOLYSIS [None]
